FAERS Safety Report 20476957 (Version 2)
Quarter: 2022Q2

REPORT INFORMATION
  Report Type: Spontaneous
  Country: FR (occurrence: FR)
  Receive Date: 20220215
  Receipt Date: 20220408
  Transmission Date: 20220720
  Serious: Yes (Other)
  Sender: FDA-Public Use
  Company Number: FR-SA-SAC20220211000864

PATIENT
  Age: 36 Year
  Sex: Female

DRUGS (1)
  1. DUPIXENT [Suspect]
     Active Substance: DUPILUMAB
     Indication: Chronic rhinosinusitis with nasal polyps
     Dosage: 300 MG

REACTIONS (4)
  - Upper airway obstruction [Unknown]
  - Dyspnoea [Recovering/Resolving]
  - Asthenia [Unknown]
  - Dysphonia [Unknown]
